FAERS Safety Report 19309846 (Version 1)
Quarter: 2021Q2

REPORT INFORMATION
  Report Type: Report from Study
  Country: US (occurrence: US)
  Receive Date: 20210526
  Receipt Date: 20210526
  Transmission Date: 20210717
  Serious: Yes (Death, Hospitalization, Other)
  Sender: FDA-Public Use
  Company Number: US-EXELIXIS-XL18421040042

PATIENT

DRUGS (10)
  1. XL184 [Suspect]
     Active Substance: CABOZANTINIB
     Indication: PANCREATIC CARCINOMA
     Dosage: 20 MG, QD
     Route: 048
     Dates: start: 20210122
  2. SODIUM BICARBONATE. [Concomitant]
     Active Substance: SODIUM BICARBONATE
  3. NIVOLUMAB [Suspect]
     Active Substance: NIVOLUMAB
     Indication: PANCREATIC CARCINOMA
     Dosage: 240 MG, Q2WEEKS
     Route: 042
     Dates: start: 20210122
  4. ZEAXANTHIN [Concomitant]
     Active Substance: ZEAXANTHIN
  5. ONDANSETRON [Concomitant]
     Active Substance: ONDANSETRON
  6. SODIUM CHLORIDE. [Concomitant]
     Active Substance: SODIUM CHLORIDE
  7. TELOTRISTAT ETHYL [Concomitant]
     Active Substance: TELOTRISTAT ETHYL
  8. OCTREOTIDE ACETATE. [Concomitant]
     Active Substance: OCTREOTIDE ACETATE
  9. LEVOTHYROXIN [Concomitant]
     Active Substance: LEVOTHYROXINE
  10. XANTOFYL [Concomitant]
     Active Substance: LUTEIN

REACTIONS (3)
  - Death [Fatal]
  - Fatigue [Unknown]
  - Acute kidney injury [Unknown]

NARRATIVE: CASE EVENT DATE: 20210409
